FAERS Safety Report 5833559-8 (Version None)
Quarter: 2008Q3

REPORT INFORMATION
  Report Type: 
  Country: None (occurrence: None)
  Receive Date: 20080804
  Receipt Date: 20080804
  Transmission Date: 20090109
  Serious: Yes (Other)
  Sender: FDA-Public Use
  Company Number: None

PATIENT
  Age: 71 Year
  Sex: Male
  Weight: 97.5234 kg

DRUGS (1)
  1. DEEPHEATING WELLPATCH METHYL SALICYLATE 10% THE METHOLATUM CO., INC. [Suspect]
     Indication: ARTHRALGIA
     Dosage: 1 PATCH LASTS FOR 8 HOURS CUTANEOUS
     Route: 003
     Dates: start: 20080728, end: 20080729

REACTIONS (4)
  - APPLICATION SITE BURN [None]
  - BURNS FIRST DEGREE [None]
  - PAIN [None]
  - SCAR [None]
